FAERS Safety Report 16491931 (Version 1)
Quarter: 2019Q3

REPORT INFORMATION
  Report Type: Spontaneous
  Country: US (occurrence: US)
  Receive Date: 20190627
  Receipt Date: 20190627
  Transmission Date: 20191004
  Serious: No
  Sender: FDA-Public Use
  Company Number: None

PATIENT
  Age: 39 Year
  Sex: Female
  Weight: 65.25 kg

DRUGS (1)
  1. HGH GEL NEW U LIVE [Suspect]
     Active Substance: HOMEOPATHICS
     Dates: start: 20181115, end: 20181201

REACTIONS (4)
  - Pain in extremity [None]
  - Arthralgia [None]
  - Breast swelling [None]
  - Rash [None]

NARRATIVE: CASE EVENT DATE: 20181125
